FAERS Safety Report 16515975 (Version 1)
Quarter: 2019Q3

REPORT INFORMATION
  Report Type: Report from Study
  Country: JP (occurrence: JP)
  Receive Date: 20190702
  Receipt Date: 20190702
  Transmission Date: 20191004
  Serious: Yes (Other)
  Sender: FDA-Public Use
  Company Number: JP-VIFOR (INTERNATIONAL) INC.-VIT-2018-03544

PATIENT
  Age: 47 Year
  Sex: Male
  Weight: 60.4 kg

DRUGS (21)
  1. ADALAT CC [Concomitant]
     Active Substance: NIFEDIPINE
     Indication: HYPERTENSION
     Route: 048
  2. VELPHORO [Suspect]
     Active Substance: FERRIC OXYHYDROXIDE
     Route: 048
     Dates: start: 20170509, end: 20170703
  3. VELPHORO [Suspect]
     Active Substance: FERRIC OXYHYDROXIDE
     Route: 048
     Dates: start: 20170704
  4. CALTAN-OD [Concomitant]
     Route: 048
     Dates: start: 20170509
  5. DOPS [Concomitant]
     Active Substance: DROXIDOPA
     Indication: PROCEDURAL HYPOTENSION
     Route: 048
  6. CALTAN-OD [Concomitant]
     Indication: HYPERPHOSPHATAEMIA
     Route: 048
     Dates: end: 20170508
  7. SILECE [Concomitant]
     Active Substance: FLUNITRAZEPAM
     Indication: INSOMNIA
     Route: 048
  8. VASOLAN [Concomitant]
     Indication: ARRHYTHMIA
     Route: 048
  9. MAXACALCITOL [Concomitant]
     Active Substance: MAXACALCITOL
     Indication: CHRONIC KIDNEY DISEASE-MINERAL AND BONE DISORDER
  10. VELPHORO [Suspect]
     Active Substance: FERRIC OXYHYDROXIDE
     Indication: HYPERPHOSPHATAEMIA
     Route: 048
     Dates: start: 20161006, end: 20170508
  11. ARTIST [Concomitant]
     Active Substance: CARVEDILOL
     Indication: HYPERTENSION
     Route: 048
  12. AZILVA [Concomitant]
     Active Substance: AZILSARTAN KAMEDOXOMIL
     Indication: HYPERTENSION
     Route: 048
     Dates: start: 20161115
  13. BLOPRESS [Concomitant]
     Active Substance: CANDESARTAN CILEXETIL
     Indication: HYPERTENSION
     Route: 048
  14. FOSRENOL [Concomitant]
     Active Substance: LANTHANUM CARBONATE
     Indication: HYPERPHOSPHATAEMIA
     Route: 048
  15. ADALAT CC [Concomitant]
     Active Substance: NIFEDIPINE
     Route: 048
  16. NEXIUM [Concomitant]
     Active Substance: ESOMEPRAZOLE MAGNESIUM
     Route: 048
  17. ARTIST [Concomitant]
     Active Substance: CARVEDILOL
     Route: 048
  18. RIONA [Concomitant]
     Active Substance: FERRIC CITRATE ANHYDROUS
     Indication: HYPERPHOSPHATAEMIA
     Route: 048
  19. SUNRYTHM [Concomitant]
     Active Substance: PILSICAINIDE HYDROCHLORIDE
     Indication: ARRHYTHMIA
     Route: 048
  20. MAGNESIUM OXIDE. [Concomitant]
     Active Substance: MAGNESIUM OXIDE
     Indication: CONSTIPATION
     Route: 048
  21. NESP [Concomitant]
     Active Substance: DARBEPOETIN ALFA
     Indication: NEPHROGENIC ANAEMIA
     Route: 042

REACTIONS (8)
  - Hepatic function abnormal [Recovered/Resolved]
  - Nasopharyngitis [Recovered/Resolved]
  - Hypertension [Recovering/Resolving]
  - Diarrhoea [Not Recovered/Not Resolved]
  - Shunt stenosis [Recovered/Resolved]
  - C-reactive protein increased [Recovering/Resolving]
  - Back pain [Recovering/Resolving]
  - Copper deficiency [Recovered/Resolved]

NARRATIVE: CASE EVENT DATE: 20170411
